FAERS Safety Report 7559411-8 (Version None)
Quarter: 2011Q2

REPORT INFORMATION
  Report Type: 
  Country: None (occurrence: None)
  Receive Date: 20110621
  Receipt Date: 20110617
  Transmission Date: 20111010
  Serious: Yes (Other)
  Sender: FDA-Public Use
  Company Number: GB-BRISTOL-MYERS SQUIBB COMPANY-15535297

PATIENT
  Age: 59 Year
  Sex: Male
  Weight: 91 kg

DRUGS (4)
  1. ERYTHROMYCIN [Concomitant]
     Dates: start: 20101125, end: 20101202
  2. EFAVIRENZ [Suspect]
     Dosage: 25NOV-05DEC10.10 DAYS. 25DEC10-02DEC10.7 DAYS
     Dates: start: 20110201
  3. MICONAZOLE [Concomitant]
     Dates: start: 20101125, end: 20101205
  4. TRUVADA [Concomitant]
     Indication: ANTIRETROVIRAL THERAPY

REACTIONS (3)
  - HEPATIC ENZYME INCREASED [None]
  - HEPATITIS [None]
  - HYPERGLYCAEMIA [None]
